FAERS Safety Report 8575439-3 (Version None)
Quarter: 2012Q3

REPORT INFORMATION
  Report Type: 
  Country: None (occurrence: None)
  Receive Date: 20120807
  Receipt Date: 20120801
  Transmission Date: 20120928
  Serious: Yes (Other)
  Sender: FDA-Public Use
  Company Number: PHHY2011CA76657

PATIENT
  Sex: Female

DRUGS (3)
  1. ZOLEDRONOC ACID [Suspect]
     Route: 042
     Dates: start: 20101014
  2. ZOLEDRONOC ACID [Suspect]
     Route: 042
     Dates: start: 20111011
  3. LIDOCAINE [Concomitant]

REACTIONS (6)
  - CYSTITIS [None]
  - BONE DISORDER [None]
  - MUSCULOSKELETAL CHEST PAIN [None]
  - NEOPLASM [None]
  - PANCREATITIS CHRONIC [None]
  - RIB FRACTURE [None]
